FAERS Safety Report 19768528 (Version 2)
Quarter: 2021Q3

REPORT INFORMATION
  Report Type: Spontaneous
  Country: US (occurrence: US)
  Receive Date: 20210830
  Receipt Date: 20210905
  Transmission Date: 20211014
  Serious: Yes (Hospitalization, Other)
  Sender: FDA-Public Use
  Company Number: US-AMGEN-USASP2021132045

PATIENT
  Sex: Male

DRUGS (2)
  1. LIDOCAINE. [Concomitant]
     Active Substance: LIDOCAINE
     Dosage: UNK
  2. OTEZLA [Suspect]
     Active Substance: APREMILAST
     Indication: PSORIATIC ARTHROPATHY
     Dosage: 30 MILLIGRAM, BID
     Route: 048
     Dates: start: 20191017

REACTIONS (4)
  - Pneumothorax [Not Recovered/Not Resolved]
  - Bone contusion [Not Recovered/Not Resolved]
  - Rib fracture [Not Recovered/Not Resolved]
  - Road traffic accident [Unknown]
